FAERS Safety Report 21997147 (Version 1)
Quarter: 2023Q1

REPORT INFORMATION
  Report Type: Spontaneous
  Country: US (occurrence: US)
  Receive Date: 20230216
  Receipt Date: 20230216
  Transmission Date: 20230418
  Serious: Yes (Other)
  Sender: FDA-Public Use
  Company Number: US-STRIDES ARCOLAB LIMITED-2022SP009968

PATIENT
  Age: 19 Year
  Sex: Male

DRUGS (8)
  1. PREDNISOLONE [Suspect]
     Active Substance: PREDNISOLONE
     Indication: Plasmablastic lymphoma
     Dosage: UNK UNK, CYCLICAL; RECEIVED 6 CYCLES; (V-EPOCH REGIMEN)
     Route: 065
  2. ETOPOSIDE [Suspect]
     Active Substance: ETOPOSIDE
     Indication: Plasmablastic lymphoma
     Dosage: UNK UNK, CYCLICAL; RECEIVED 6 CYCLES; (V-EPOCH REGIMEN)
     Route: 065
  3. DOXORUBICIN [Suspect]
     Active Substance: DOXORUBICIN
     Indication: Plasmablastic lymphoma
     Dosage: UNK UNK, CYCLICAL; RECEIVED 6 CYCLES; (V-EPOCH REGIMEN)
     Route: 065
  4. VELCADE [Suspect]
     Active Substance: BORTEZOMIB
     Indication: Plasmablastic lymphoma
     Dosage: UNK UNK, CYCLICAL; RECEIVED 6 CYCLES; (V-EPOCH REGIMEN)
     Route: 065
  5. VINCRISTINE [Suspect]
     Active Substance: VINCRISTINE
     Indication: Plasmablastic lymphoma
     Dosage: UNK UNK, CYCLICAL; RECEIVED 6 CYCLES; (V-EPOCH REGIMEN)
     Route: 065
  6. CYCLOPHOSPHAMIDE [Suspect]
     Active Substance: CYCLOPHOSPHAMIDE
     Indication: Plasmablastic lymphoma
     Dosage: UNK UNK, CYCLICAL; RECEIVED 6 CYCLES; (V-EPOCH REGIMEN)
     Route: 065
  7. METHOTREXATE [Suspect]
     Active Substance: METHOTREXATE
     Indication: Neoplasm progression
     Dosage: UNK UNK, CYCLICAL; RECEIVED 6 CYCLES; (V-EPOCH REGIMEN)
     Route: 037
  8. METHOTREXATE [Suspect]
     Active Substance: METHOTREXATE
     Indication: Stem cell transplant

REACTIONS (4)
  - Thrombocytopenia [Recovered/Resolved]
  - HIV infection [Unknown]
  - Hyperuricaemia [Recovered/Resolved]
  - Off label use [Unknown]
